FAERS Safety Report 5943035-X (Version None)
Quarter: 2008Q4

REPORT INFORMATION
  Report Type: 
  Country: None (occurrence: None)
  Receive Date: 20081106
  Receipt Date: 20081103
  Transmission Date: 20090506
  Serious: Yes (Other)
  Sender: FDA-Public Use
  Company Number: US-ASTRAZENECA-2008UW24555

PATIENT
  Age: 84 Year
  Sex: Female

DRUGS (2)
  1. NEXIUM [Suspect]
     Dosage: 40 MG
     Route: 048
  2. DIOVAN [Concomitant]

REACTIONS (3)
  - FALL [None]
  - RIB FRACTURE [None]
  - SPINAL FRACTURE [None]
